FAERS Safety Report 15000075 (Version 1)
Quarter: 2018Q2

REPORT INFORMATION
  Report Type: Spontaneous
  Country: US (occurrence: US)
  Receive Date: 20180612
  Receipt Date: 20180612
  Transmission Date: 20180711
  Serious: No
  Sender: FDA-Public Use
  Company Number: US-GLAXOSMITHKLINE-US2018GSK101099

PATIENT
  Sex: Male

DRUGS (2)
  1. ANORO ELLIPTA [Suspect]
     Active Substance: UMECLIDINIUM BROMIDE\VILANTEROL TRIFENATATE
     Indication: DYSPNOEA
     Route: 055
  2. ANORO ELLIPTA [Suspect]
     Active Substance: UMECLIDINIUM BROMIDE\VILANTEROL TRIFENATATE
     Indication: CHRONIC OBSTRUCTIVE PULMONARY DISEASE

REACTIONS (10)
  - Nervousness [Unknown]
  - Pruritus [Unknown]
  - Swelling face [Unknown]
  - Tremor [Unknown]
  - Rash [Unknown]
  - Dizziness [Unknown]
  - Cough [Recovering/Resolving]
  - Intentional underdose [Unknown]
  - Lip swelling [Unknown]
  - Secretion discharge [Recovering/Resolving]
